FAERS Safety Report 8599679 (Version 4)
Quarter: 2013Q3

REPORT INFORMATION
  Report Type: Report from Study
  Country: MX (occurrence: MX)
  Receive Date: 20120605
  Receipt Date: 20130920
  Transmission Date: 20140515
  Serious: Yes (Other)
  Sender: FDA-Public Use
  Company Number: PHHY2012MX047286

PATIENT
  Age: 76 Year
  Sex: Female

DRUGS (12)
  1. EXFORGE HCT [Suspect]
     Indication: HYPERTENSION
     Dosage: 1 DF (320 MG VALS/ 10 MG AMLO/ 25 MG HYDRO), DAILY
     Route: 048
     Dates: start: 20121009
  2. PLAVIX [Concomitant]
     Dosage: 1 DF, DAILY
     Dates: start: 2010
  3. PENTOXIFYLLINE [Concomitant]
     Dosage: 400 MG, DAILY (2 DF)
  4. PENTOXIFYLLINE [Concomitant]
     Dosage: 2 UKN, DAILY
  5. NIMOTOP [Concomitant]
     Dosage: 30 MG, DAILY
  6. SPIRIVA [Concomitant]
     Dosage: 1 UKN, DAILY
  7. ASPIRIN PROTECT [Concomitant]
     Dosage: 100 MG, DAILY (1 DF)
  8. ASPIRIN PROTECT [Concomitant]
     Dosage: 1 UKN, DAILY
  9. GALVUS MET [Concomitant]
     Dosage: 1 DF, DAILY
  10. PARACETAMOL [Concomitant]
     Dosage: 1 DF, DAILY
  11. INSULIN [Concomitant]
     Indication: DIABETES MELLITUS
     Dosage: 23 IU, UNK
  12. INSULIN [Concomitant]
     Dosage: 24 IU, DAILY
     Dates: start: 201201

REACTIONS (1)
  - Deafness [Not Recovered/Not Resolved]
